FAERS Safety Report 8935521 (Version 1)
Quarter: 2012Q4

REPORT INFORMATION
  Report Type: 
  Country: US (occurrence: None)
  Receive Date: 20121128
  Receipt Date: 20121128
  Transmission Date: 20130627
  Serious: Yes (Hospitalization)
  Sender: FDA-Public Use
  Company Number: None

PATIENT
  Sex: Female
  Weight: 79.65 kg

DRUGS (3)
  1. CARBOPLATIN [Suspect]
  2. PACLITAXEL (TAXOL) [Suspect]
  3. PEGFILGRASTIM [Suspect]

REACTIONS (13)
  - Implant site swelling [None]
  - Implant site warmth [None]
  - Implant site erythema [None]
  - Fatigue [None]
  - Asthenia [None]
  - Nausea [None]
  - Vomiting [None]
  - Neutropenia [None]
  - Dehydration [None]
  - Implant site infection [None]
  - Oral candidiasis [None]
  - Platelet count decreased [None]
  - Implant site dermatitis [None]
